FAERS Safety Report 6023508-4 (Version None)
Quarter: 2008Q4

REPORT INFORMATION
  Report Type: 
  Country: None (occurrence: None)
  Receive Date: 20081230
  Receipt Date: 20081222
  Transmission Date: 20090506
  Serious: Yes (Hospitalization)
  Sender: FDA-Public Use
  Company Number: FR-WYE-H07410108

PATIENT
  Sex: Female

DRUGS (6)
  1. CORDARONE [Suspect]
     Indication: TACHYARRHYTHMIA
     Route: 048
     Dates: start: 20080605, end: 20081112
  2. SEROPRAM [Concomitant]
  3. COVERSYL [Concomitant]
     Dosage: UNKNOWN
     Route: 048
  4. LASILIX [Concomitant]
  5. KARDEGIC [Concomitant]
  6. CARDENSIEL [Concomitant]
     Dosage: UNKNOWN
     Route: 048

REACTIONS (2)
  - CARDIAC FLUTTER [None]
  - HYPOTHYROIDISM [None]
